FAERS Safety Report 10452884 (Version 2)
Quarter: 2014Q4

REPORT INFORMATION
  Report Type: Spontaneous
  Country: US (occurrence: US)
  Receive Date: 20140915
  Receipt Date: 20141024
  Transmission Date: 20150528
  Serious: Yes (Other)
  Sender: FDA-Public Use
  Company Number: US-BAYER-2014-137219

PATIENT
  Age: 26 Year
  Sex: Female
  Weight: 113 kg

DRUGS (1)
  1. SKYLA [Suspect]
     Active Substance: LEVONORGESTREL
     Indication: CONTRACEPTION
     Dosage: 14 MCG/24HR, CONT
     Route: 015
     Dates: start: 20140626, end: 20140926

REACTIONS (5)
  - Embedded device [Recovered/Resolved]
  - Abdominal pain [Recovered/Resolved]
  - Post procedural discomfort [Recovered/Resolved]
  - Genital haemorrhage [Recovered/Resolved]
  - Uterine leiomyoma [None]

NARRATIVE: CASE EVENT DATE: 20140626
